FAERS Safety Report 7178903-7 (Version None)
Quarter: 2010Q4

REPORT INFORMATION
  Report Type: 
  Country: None (occurrence: None)
  Receive Date: 20101217
  Receipt Date: 20101217
  Transmission Date: 20110411
  Serious: Yes (Other)
  Sender: FDA-Public Use
  Company Number: None

PATIENT
  Age: 47 Year
  Sex: Female
  Weight: 104.3273 kg

DRUGS (1)
  1. MIRENA [Suspect]
     Indication: CONTRACEPTION
     Dates: start: 20100226, end: 20101210

REACTIONS (9)
  - ABDOMINAL DISTENSION [None]
  - ANXIETY [None]
  - FATIGUE [None]
  - HAEMORRHAGE [None]
  - HEADACHE [None]
  - NAUSEA [None]
  - OVARIAN CYST [None]
  - OVARIAN CYST RUPTURED [None]
  - VOMITING [None]
